FAERS Safety Report 5153280-1 (Version None)
Quarter: 2006Q4

REPORT INFORMATION
  Report Type: 
  Country: None (occurrence: None)
  Receive Date: 20061116
  Receipt Date: 20061116
  Transmission Date: 20070319
  Serious: Yes (Life-Threatening, Hospitalization)
  Sender: FDA-Public Use
  Company Number: None

PATIENT
  Age: 73 Year
  Sex: Male
  Weight: 80 kg

DRUGS (3)
  1. EPTIFIBATIDE BOLUS [Suspect]
     Indication: MYOCARDIAL INFARCTION
     Dosage: 2MCG/KG/MIN  CONT.  IV
     Route: 042
     Dates: start: 20060617, end: 20060617
  2. CLOPIDOGREL [Suspect]
     Indication: MYOCARDIAL INFARCTION
     Dosage: 300MG
     Dates: start: 20060617
  3. ASPIRIN [Suspect]
     Dosage: 81
     Dates: start: 20060612, end: 20060618

REACTIONS (2)
  - GASTROINTESTINAL HAEMORRHAGE [None]
  - PLATELET COUNT DECREASED [None]
